FAERS Safety Report 7914001-X (Version None)
Quarter: 2011Q4

REPORT INFORMATION
  Report Type: 
  Country: None (occurrence: None)
  Receive Date: 20111110
  Receipt Date: 20111027
  Transmission Date: 20120403
  Serious: Yes (Other)
  Sender: FDA-Public Use
  Company Number: 2011-4319

PATIENT
  Sex: Female

DRUGS (2)
  1. DYSPORT [Suspect]
     Indication: SKIN WRINKLING
     Dosage: SINGLE CYCLE, INTRADERMAL
     Route: 023
     Dates: start: 20111022, end: 20111022
  2. DYSPORT [Suspect]
     Indication: OFF LABEL USE
     Dosage: SINGLE CYCLE, INTRADERMAL
     Route: 023
     Dates: start: 20111022, end: 20111022

REACTIONS (1)
  - RETINAL HAEMORRHAGE [None]
